FAERS Safety Report 9321179 (Version 1)
Quarter: 2013Q2

REPORT INFORMATION
  Report Type: Spontaneous
  Country: PH (occurrence: PH)
  Receive Date: 20130531
  Receipt Date: 20130531
  Transmission Date: 20140414
  Serious: Yes (Hospitalization)
  Sender: FDA-Public Use
  Company Number: PH-009507513-1304PHL005806

PATIENT
  Age: 47 Year
  Sex: Male

DRUGS (2)
  1. RIBAVIRIN [Suspect]
     Indication: HEPATITIS C
     Dosage: 5 CAPSULES DAILY (3-2)
     Route: 048
     Dates: start: 20120731, end: 201305
  2. PEG-INTRON REDIPEN [Suspect]
     Indication: HEPATITIS C
     Dosage: 100 MICROGRAM, QD
     Route: 058
     Dates: start: 20120731, end: 201305

REACTIONS (4)
  - Headache [Unknown]
  - Dizziness [Unknown]
  - Haemoglobin decreased [Unknown]
  - Vertigo [Unknown]
